FAERS Safety Report 4310186-5 (Version None)
Quarter: 2004Q1

REPORT INFORMATION
  Report Type: 
  Country: None (occurrence: None)
  Receive Date: 20040227
  Receipt Date: 20040122
  Transmission Date: 20041129
  Serious: No
  Sender: FDA-Public Use
  Company Number: FABR-10444

PATIENT
  Age: 40 Year
  Sex: Male
  Weight: 61 kg

DRUGS (3)
  1. FABRAZYME [Suspect]
     Indication: FABRY'S DISEASE
     Dosage: 70 MG Q2WKS IV
     Route: 042
     Dates: start: 20030903
  2. TYLENOL (CAPLET) [Concomitant]
  3. ZESTRIL [Concomitant]

REACTIONS (5)
  - ABDOMINAL DISTENSION [None]
  - ERUCTATION [None]
  - FLATULENCE [None]
  - FLUSHING [None]
  - NAUSEA [None]
